FAERS Safety Report 7760309-0 (Version None)
Quarter: 2011Q3

REPORT INFORMATION
  Report Type: 
  Country: None (occurrence: None)
  Receive Date: 20110919
  Receipt Date: 20110908
  Transmission Date: 20111222
  Serious: Yes (Hospitalization)
  Sender: FDA-Public Use
  Company Number: US-JNJFOC-20110904550

PATIENT
  Sex: Male
  Weight: 31.3 kg

DRUGS (2)
  1. REMICADE [Suspect]
     Indication: CROHN'S DISEASE
     Route: 042
     Dates: start: 20070301, end: 20090618
  2. HUMIRA [Concomitant]
     Dates: start: 20090815

REACTIONS (1)
  - LARGE INTESTINAL OBSTRUCTION [None]
